FAERS Safety Report 5566754-6 (Version None)
Quarter: 2007Q4

REPORT INFORMATION
  Report Type: 
  Country: None (occurrence: None)
  Receive Date: 20071218
  Receipt Date: 20071218
  Transmission Date: 20080405
  Serious: Yes (Hospitalization)
  Sender: FDA-Public Use
  Company Number: None

PATIENT
  Age: 40 Year
  Sex: Male
  Weight: 129 kg

DRUGS (6)
  1. AVASTIN [Suspect]
     Indication: GLIOBLASTOMA
     Dosage: 10MG/KG  EVERY 14 DAYS  IV DRIP
     Route: 041
     Dates: start: 20071102, end: 20071130
  2. DEXAMETHASONE TAB [Concomitant]
  3. FAMOTIDINE [Concomitant]
  4. LEVETIRACETAM [Concomitant]
  5. ENALAPRIL [Concomitant]
  6. TEMODAR [Concomitant]

REACTIONS (1)
  - THROMBOSIS [None]
